FAERS Safety Report 6767337-2 (Version None)
Quarter: 2010Q2

REPORT INFORMATION
  Report Type: 
  Country: None (occurrence: None)
  Receive Date: 20100610
  Receipt Date: 20100528
  Transmission Date: 20101027
  Serious: Yes (Death)
  Sender: FDA-Public Use
  Company Number: JPI-P-010848

PATIENT
  Age: 31 Year

DRUGS (1)
  1. XYREM [Suspect]
     Indication: INSOMNIA
     Dosage: 5 GM (2.5 GM,2 IN 1 D),ORAL
     Route: 048
     Dates: start: 20100518

REACTIONS (1)
  - DEATH [None]
